FAERS Safety Report 16093326 (Version 3)
Quarter: 2020Q1

REPORT INFORMATION
  Report Type: Report from Study
  Country: None (occurrence: CA)
  Receive Date: 20190320
  Receipt Date: 20200220
  Transmission Date: 20200409
  Serious: Yes (Hospitalization, Other)
  Sender: FDA-Public Use
  Company Number: CA-ABBVIE-19K-028-2707489-00

PATIENT
  Age: 43 Year
  Sex: Male

DRUGS (1)
  1. HUMIRA [Suspect]
     Active Substance: ADALIMUMAB
     Indication: CROHN^S DISEASE
     Route: 058
     Dates: start: 20150415

REACTIONS (17)
  - Pyoderma gangrenosum [Not Recovered/Not Resolved]
  - Stoma site haemorrhage [Unknown]
  - Arthralgia [Recovered/Resolved]
  - Mobility decreased [Unknown]
  - Gastrointestinal pain [Not Recovered/Not Resolved]
  - Diarrhoea [Unknown]
  - Rectal haemorrhage [Not Recovered/Not Resolved]
  - Arthralgia [Unknown]
  - General physical condition abnormal [Unknown]
  - Peripheral swelling [Unknown]
  - Abdominal hernia [Not Recovered/Not Resolved]
  - Purulent discharge [Not Recovered/Not Resolved]
  - Therapeutic response shortened [Not Recovered/Not Resolved]
  - Ileostomy [Not Recovered/Not Resolved]
  - General physical health deterioration [Recovered/Resolved]
  - Stoma site haemorrhage [Recovered/Resolved]
  - Anal fistula [Not Recovered/Not Resolved]

NARRATIVE: CASE EVENT DATE: 2016
